FAERS Safety Report 5881149-3 (Version None)
Quarter: 2008Q3

REPORT INFORMATION
  Report Type: 
  Country: None (occurrence: None)
  Receive Date: 20080912
  Receipt Date: 20080620
  Transmission Date: 20090109
  Serious: No
  Sender: FDA-Public Use
  Company Number: US-ABBOTT-08P-163-0458792-00

PATIENT
  Sex: Female

DRUGS (2)
  1. HUMIRA [Suspect]
     Indication: PSORIASIS
     Route: 058
     Dates: end: 20080401
  2. HUMIRA [Suspect]
     Route: 058
     Dates: start: 20080601

REACTIONS (2)
  - FATIGUE [None]
  - SYSTEMIC LUPUS ERYTHEMATOSUS [None]
